FAERS Safety Report 7105484 (Version 5)
Quarter: 2014Q2

REPORT INFORMATION
  Report Type: Spontaneous
  Country: US (occurrence: US)
  Receive Date: 20090904
  Receipt Date: 20140407
  Transmission Date: 20141212
  Serious: Yes (Hospitalization, Other)
  Sender: FDA-Public Use
  Company Number: US-ALEXION-A200900694

PATIENT
  Age: 51 Year
  Sex: Male

DRUGS (7)
  1. SOLIRIS [Suspect]
     Indication: PAROXYSMAL NOCTURNAL HAEMOGLOBINURIA
     Dosage: 600 MG WEEKLY FOR 4 WEEKS
     Route: 042
     Dates: start: 20070702, end: 20070723
  2. SOLIRIS [Suspect]
     Dosage: 900 MG Q2W
     Route: 042
     Dates: start: 20070730, end: 20080304
  3. SOLIRIS [Suspect]
     Dosage: 1200 MG, Q14D
     Dates: start: 20080318
  4. SOLIRIS [Suspect]
     Dosage: 900 MG, Q2W
     Route: 042
  5. VITAMIN B12                        /00056201/ [Concomitant]
     Indication: VITAMIN B12 DEFICIENCY
  6. PERCOCET                           /00446701/ [Concomitant]
  7. ANTIBIOTIC                         /00011701/ [Concomitant]

REACTIONS (3)
  - Pneumonia [Recovered/Resolved]
  - Haemoglobin decreased [Unknown]
  - Overdose [Unknown]
